FAERS Safety Report 13351330 (Version 5)
Quarter: 2017Q2

REPORT INFORMATION
  Report Type: Report from Study
  Country: US (occurrence: US)
  Receive Date: 20170320
  Receipt Date: 20170524
  Transmission Date: 20170830
  Serious: Yes (Other)
  Sender: FDA-Public Use
  Company Number: US-OTSUKA-2017_006052

PATIENT
  Age: 50 Year
  Sex: Male
  Weight: 103.4 kg

DRUGS (17)
  1. TOLVAPTAN [Suspect]
     Active Substance: TOLVAPTAN
     Indication: CONGENITAL CYSTIC KIDNEY DISEASE
     Dosage: 90 MG, QD (IN MORNING) (RANDOMIZATION)
     Route: 048
     Dates: start: 20150715, end: 20160516
  2. TOLVAPTAN [Suspect]
     Active Substance: TOLVAPTAN
     Dosage: 90 MG, QD (IN MORNING) (TITRATION PHASE)
     Route: 048
     Dates: start: 20150621, end: 20150623
  3. VITAMIN B12 [Concomitant]
     Active Substance: CYANOCOBALAMIN
     Indication: VITAMIN SUPPLEMENTATION
     Dosage: 1 DF, QD (1 TAB, QD)
     Route: 048
     Dates: start: 2010
  4. TOLVAPTAN [Suspect]
     Active Substance: TOLVAPTAN
     Dosage: 30 MG, QD (IN MORNING) (TITRATION PHASE)
     Route: 048
     Dates: start: 20150609, end: 20150612
  5. TOLVAPTAN [Suspect]
     Active Substance: TOLVAPTAN
     Dosage: 60 MG, QD (IN MORNING) (TITRATION PHASE)
     Route: 048
     Dates: start: 20150617, end: 20150620
  6. TOLVAPTAN [Suspect]
     Active Substance: TOLVAPTAN
     Dosage: 30 MG, QD (IN EVENING) (TITRATION PHASE)
     Route: 048
     Dates: start: 20150617, end: 20150620
  7. TOLVAPTAN [Suspect]
     Active Substance: TOLVAPTAN
     Dosage: 45 MG, QD (IN MORNING) (TITRATION PHASE)
     Route: 048
     Dates: start: 20150613, end: 20150616
  8. LISINOPRIL. [Concomitant]
     Active Substance: LISINOPRIL
     Indication: HYPERTENSION
     Dosage: 10 UNK, QD
     Route: 048
     Dates: start: 2005
  9. FISH OIL [Concomitant]
     Active Substance: FISH OIL
     Indication: SUPPLEMENTATION THERAPY
     Dosage: 1200 UNK QD
     Route: 048
     Dates: start: 2009
  10. TOLVAPTAN [Suspect]
     Active Substance: TOLVAPTAN
     Dosage: 15 MG, QD (IN EVENING) (TITRATION PHASE)
     Route: 048
     Dates: start: 20150609, end: 20150612
  11. TOLVAPTAN [Suspect]
     Active Substance: TOLVAPTAN
     Dosage: 30 MG, QD (IN EVENING) (TOLVAPTAN RUN-IN)
     Route: 048
     Dates: start: 20150624, end: 20150714
  12. VYTORIN [Concomitant]
     Active Substance: EZETIMIBE\SIMVASTATIN
     Indication: HYPERCHOLESTEROLAEMIA
     Dosage: 10/40, UNK QD
     Route: 048
     Dates: start: 2011
  13. TOLVAPTAN [Suspect]
     Active Substance: TOLVAPTAN
     Dosage: 30 MG, QD (IN EVENING) (RANDOMIZATION)
     Route: 048
     Dates: start: 20150715, end: 20160516
  14. GLUCOSAMINE [Concomitant]
     Active Substance: GLUCOSAMINE
     Indication: SUPPLEMENTATION THERAPY
     Dosage: 600, UNK QD
     Route: 048
     Dates: start: 2009
  15. TOLVAPTAN [Suspect]
     Active Substance: TOLVAPTAN
     Dosage: 15 MG, QD (IN EVENING) (TITRATION PHASE)
     Route: 048
     Dates: start: 20150613, end: 20150616
  16. TOLVAPTAN [Suspect]
     Active Substance: TOLVAPTAN
     Dosage: 30 MG, QD (IN EVENING) (TITRATION PHASE)
     Route: 048
     Dates: start: 20150621, end: 20150623
  17. TOLVAPTAN [Suspect]
     Active Substance: TOLVAPTAN
     Dosage: 90 MG, QD  (IN MORNING) (TOLVAPTAN RUN-IN)
     Route: 048
     Dates: start: 20150624, end: 20150714

REACTIONS (1)
  - Hepatic enzyme increased [Recovered/Resolved]

NARRATIVE: CASE EVENT DATE: 20160513
